FAERS Safety Report 15960774 (Version 3)
Quarter: 2019Q1

REPORT INFORMATION
  Report Type: Spontaneous
  Country: US (occurrence: US)
  Receive Date: 20190214
  Receipt Date: 20190328
  Transmission Date: 20190417
  Serious: No
  Sender: FDA-Public Use
  Company Number: US-UNITED THERAPEUTICS-UNT-2019-002359

PATIENT
  Age: 72 Year
  Sex: Female

DRUGS (4)
  1. REMODULIN [Suspect]
     Active Substance: TREPROSTINIL
     Indication: PULMONARY ARTERIAL HYPERTENSION
     Dosage: 0.0247 ?G/KG, CONTINUING
     Route: 058
     Dates: start: 20170812
  2. REMODULIN [Suspect]
     Active Substance: TREPROSTINIL
     Dosage: 0.0247 ?G/KG, CONTINUING
     Route: 058
     Dates: start: 20190320
  3. OPSUMIT [Suspect]
     Active Substance: MACITENTAN
     Indication: PRODUCT USED FOR UNKNOWN INDICATION
     Route: 065
  4. REMODULIN [Suspect]
     Active Substance: TREPROSTINIL
     Dosage: 0.0257 ?G/KG, CONTINUING (FOR 06 DAYS)
     Route: 058

REACTIONS (7)
  - Insomnia [Unknown]
  - Dizziness [Unknown]
  - Infusion site haemorrhage [Unknown]
  - Headache [Recovering/Resolving]
  - Device dislocation [Unknown]
  - Dyspnoea [Recovering/Resolving]
  - Infusion site pain [Unknown]

NARRATIVE: CASE EVENT DATE: 201903
